FAERS Safety Report 7985815-5 (Version None)
Quarter: 2011Q4

REPORT INFORMATION
  Report Type: 
  Country: None (occurrence: None)
  Receive Date: 20111214
  Receipt Date: 20111130
  Transmission Date: 20120403
  Serious: Yes (Death, Life-Threatening, Other)
  Sender: FDA-Public Use
  Company Number: 2011MA017050

PATIENT
  Age: 86 Year
  Sex: Female

DRUGS (27)
  1. NIFEDIPINE [Concomitant]
  2. FOSAMAX [Concomitant]
  3. APAP TAB [Concomitant]
  4. LASIX [Concomitant]
  5. ZOCOR [Concomitant]
  6. PRESSORS [Concomitant]
  7. NIASPAN [Concomitant]
  8. CALCIUM CARBONATE [Concomitant]
  9. AZACTAM [Concomitant]
  10. VANCOMYCIN HYCHLORIDE [Concomitant]
  11. FISH OIL [Concomitant]
  12. EPINEPHRINE [Concomitant]
  13. SODIUM BICARBONATE [Concomitant]
  14. VITAMIN D [Concomitant]
  15. VITAMIN E [Concomitant]
  16. PROTONIX [Concomitant]
  17. DOPAMINE HCL [Concomitant]
  18. ATENOLOL [Concomitant]
  19. LISINOPRIL [Concomitant]
  20. DETROL LA [Concomitant]
  21. CLONIDINE [Concomitant]
  22. DIGIBIND [Concomitant]
  23. DIGOXIN [Suspect]
     Indication: ATRIAL FIBRILLATION
     Dosage: .250 MG;QD;PO
     Route: 048
     Dates: start: 20060221, end: 20080128
  24. ASPIRIN [Concomitant]
  25. VITAMIN C [Concomitant]
  26. ATROPINE [Concomitant]
  27. IV FLUIDS [Concomitant]

REACTIONS (86)
  - MULTIPLE INJURIES [None]
  - GENERAL PHYSICAL HEALTH DETERIORATION [None]
  - HYPERCALCAEMIA [None]
  - PNEUMONIA [None]
  - PLATELET COUNT DECREASED [None]
  - LEFT ATRIAL DILATATION [None]
  - TOXICITY TO VARIOUS AGENTS [None]
  - MENTAL DISORDER [None]
  - EMOTIONAL DISTRESS [None]
  - ANHEDONIA [None]
  - DECREASED APPETITE [None]
  - PAIN IN EXTREMITY [None]
  - BACK PAIN [None]
  - CERVICAL SPINAL STENOSIS [None]
  - LUMBAR SPINAL STENOSIS [None]
  - TYPE 2 DIABETES MELLITUS [None]
  - CAROTID ARTERY STENOSIS [None]
  - LEUKOCYTOSIS [None]
  - PUPILLARY REFLEX IMPAIRED [None]
  - PULMONARY CONGESTION [None]
  - HYPOTENSION [None]
  - GAIT DISTURBANCE [None]
  - ARTHRALGIA [None]
  - NERVOUS SYSTEM DISORDER [None]
  - WEIGHT DECREASED [None]
  - UNRESPONSIVE TO STIMULI [None]
  - RENAL ARTERY STENOSIS [None]
  - HEART RATE IRREGULAR [None]
  - CAROTID BRUIT [None]
  - CARDIOMEGALY [None]
  - ACUTE MYOCARDIAL INFARCTION [None]
  - WALKING AID USER [None]
  - MUSCULAR WEAKNESS [None]
  - SYNCOPE [None]
  - MENTAL STATUS CHANGES [None]
  - GASTRITIS [None]
  - OEDEMA PERIPHERAL [None]
  - CARDIOACTIVE DRUG LEVEL ABOVE THERAPEUTIC [None]
  - MITRAL VALVE INCOMPETENCE [None]
  - GASTROINTESTINAL HAEMORRHAGE [None]
  - ESSENTIAL HYPERTENSION [None]
  - OSTEOARTHRITIS [None]
  - WHEELCHAIR USER [None]
  - RESPIRATORY FAILURE [None]
  - MITRAL VALVE REPLACEMENT [None]
  - HYPERTHERMIA [None]
  - ELECTROCARDIOGRAM ST-T CHANGE [None]
  - LEFT VENTRICULAR HYPERTROPHY [None]
  - UNEVALUABLE EVENT [None]
  - ANXIETY [None]
  - UROSEPSIS [None]
  - BALANCE DISORDER [None]
  - LABILE HYPERTENSION [None]
  - ATRIAL FIBRILLATION [None]
  - IRON DEFICIENCY [None]
  - UPPER GASTROINTESTINAL HAEMORRHAGE [None]
  - SEPSIS [None]
  - HAEMATEMESIS [None]
  - ATAXIA [None]
  - ABDOMINAL DISTENSION [None]
  - TRICUSPID VALVE INCOMPETENCE [None]
  - PERICARDIAL EFFUSION [None]
  - OEDEMA [None]
  - BLOOD SODIUM DECREASED [None]
  - CARDIAC ARREST [None]
  - URINARY TRACT INFECTION [None]
  - SEPTIC SHOCK [None]
  - BLOOD CHOLESTEROL INCREASED [None]
  - RHONCHI [None]
  - GASTROINTESTINAL SOUNDS ABNORMAL [None]
  - PERIPHERAL SENSORY NEUROPATHY [None]
  - CONDUCTION DISORDER [None]
  - PULMONARY HYPERTENSION [None]
  - ECONOMIC PROBLEM [None]
  - PAIN [None]
  - MALAISE [None]
  - ABASIA [None]
  - BLOOD PRESSURE INADEQUATELY CONTROLLED [None]
  - HYPERGAMMAGLOBULINAEMIA BENIGN MONOCLONAL [None]
  - BLOOD POTASSIUM DECREASED [None]
  - BONE PAIN [None]
  - BRADYCARDIA [None]
  - BLOOD GLUCOSE DECREASED [None]
  - MUCOSAL DRYNESS [None]
  - MITRAL VALVE CALCIFICATION [None]
  - AORTIC ARTERIOSCLEROSIS [None]
